FAERS Safety Report 8428864 (Version 4)
Quarter: 2013Q1

REPORT INFORMATION
  Report Type: Report from Study
  Country: FR (occurrence: FR)
  Receive Date: 20120227
  Receipt Date: 20130124
  Transmission Date: 20140127
  Serious: Yes (Hospitalization, Other)
  Sender: FDA-Public Use
  Company Number: FR-ROCHE-1041027

PATIENT
  Age: 66 Year
  Sex: Female
  Weight: 59 kg

DRUGS (18)
  1. MYCOPHENOLATE MOFETIL [Suspect]
     Indication: RENAL TRANSPLANT
     Dosage: 500 MG TABLET
     Route: 048
     Dates: start: 20111125, end: 20120217
  2. MYCOPHENOLATE MOFETIL [Suspect]
     Indication: TRANSPLANT REJECTION
  3. NEORAL [Suspect]
     Indication: RENAL TRANSPLANT
     Route: 048
     Dates: start: 20111125
  4. NEORAL [Suspect]
     Indication: TRANSPLANT REJECTION
  5. SOLUPRED (FRANCE) [Suspect]
     Indication: RENAL TRANSPLANT
     Route: 048
     Dates: start: 20111125
  6. SOLUPRED (FRANCE) [Suspect]
     Indication: TRANSPLANT REJECTION
  7. ADVAGRAF [Suspect]
     Indication: RENAL TRANSPLANT
     Route: 065
     Dates: start: 20120218
  8. CERTICAN [Suspect]
     Indication: RENAL TRANSPLANT
     Route: 065
     Dates: start: 20120218
  9. CERTICAN [Suspect]
     Route: 048
     Dates: start: 20120418
  10. KALEORID [Suspect]
     Indication: RENAL TRANSPLANT
     Route: 048
     Dates: start: 20120215
  11. LANTUS [Suspect]
     Indication: RENAL TRANSPLANT
     Route: 065
     Dates: start: 20111223
  12. NOVORAPID [Suspect]
     Indication: RENAL TRANSPLANT
     Route: 065
     Dates: start: 20111226
  13. BACTRIM FORTE [Concomitant]
     Route: 048
     Dates: start: 20111201
  14. ICAZ LP [Concomitant]
     Route: 065
     Dates: start: 20111227
  15. INEXIUM [Concomitant]
     Route: 048
     Dates: start: 20110213
  16. VENOFER [Concomitant]
     Route: 048
     Dates: start: 20120215, end: 20120215
  17. ARANESP [Concomitant]
     Route: 065
     Dates: start: 20110213
  18. EUPANTOL [Concomitant]
     Route: 065
     Dates: start: 20111208

REACTIONS (4)
  - Anaemia [Not Recovered/Not Resolved]
  - Transfusion [Recovered/Resolved]
  - Gastrointestinal angiodysplasia [Not Recovered/Not Resolved]
  - Dyspnoea [Not Recovered/Not Resolved]
